FAERS Safety Report 23560800 (Version 1)
Quarter: 2024Q1

REPORT INFORMATION
  Report Type: Spontaneous
  Country: CA (occurrence: CA)
  Receive Date: 20240223
  Receipt Date: 20240223
  Transmission Date: 20240410
  Serious: Yes (Other)
  Sender: FDA-Public Use
  Company Number: CA-ANIPHARMA-2024-CA-001239

PATIENT
  Age: 74 Year
  Sex: 0
  Weight: 58 kg

DRUGS (1)
  1. CANDESARTAN [Suspect]
     Active Substance: CANDESARTAN
     Indication: Product used for unknown indication
     Dosage: 8 MG QD / 12 MG QD
     Route: 065

REACTIONS (2)
  - Hypertension [Unknown]
  - Therapeutic response changed [Unknown]
